FAERS Safety Report 10336824 (Version 3)
Quarter: 2014Q3

REPORT INFORMATION
  Report Type: Spontaneous
  Country: JP (occurrence: JP)
  Receive Date: 20140723
  Receipt Date: 20140904
  Transmission Date: 20150326
  Serious: Yes (Hospitalization)
  Sender: FDA-Public Use
  Company Number: JP-VIIV HEALTHCARE LIMITED-B1015715A

PATIENT
  Age: 50 Year
  Sex: Male

DRUGS (8)
  1. EPIVIR [Suspect]
     Active Substance: LAMIVUDINE
     Indication: HIV INFECTION
     Route: 048
     Dates: start: 200111
  2. ZIAGEN [Suspect]
     Active Substance: ABACAVIR SULFATE
     Indication: HIV INFECTION
     Dosage: 300MG TWICE PER DAY
     Route: 048
  3. FOIPAN [Concomitant]
     Active Substance: CAMOSTAT MESYLATE
     Dosage: 100MG THREE TIMES PER DAY
     Route: 048
     Dates: start: 200510, end: 201307
  4. DARUNAVIR ETHANOLATE [Concomitant]
     Active Substance: DARUNAVIR ETHANOLATE
     Indication: HIV INFECTION
     Route: 048
  5. ZIAGEN [Suspect]
     Active Substance: ABACAVIR SULFATE
     Indication: HIV INFECTION
     Dosage: 300MG TWICE PER DAY
     Route: 048
     Dates: start: 20140320
  6. NORVIR [Concomitant]
     Active Substance: RITONAVIR
     Indication: HIV INFECTION
     Route: 048
  7. URSO [Concomitant]
     Active Substance: URSODIOL
     Dosage: 100MG THREE TIMES PER DAY
     Route: 048
     Dates: start: 200409
  8. EPIVIR [Suspect]
     Active Substance: LAMIVUDINE
     Indication: HIV INFECTION
     Dosage: 150MG PER DAY
     Route: 048
     Dates: start: 201306

REACTIONS (4)
  - Cholecystitis [Recovering/Resolving]
  - Nausea [Recovering/Resolving]
  - Cholelithiasis [Recovering/Resolving]
  - Gallbladder enlargement [Recovering/Resolving]

NARRATIVE: CASE EVENT DATE: 20140619
